FAERS Safety Report 7437333-0 (Version None)
Quarter: 2011Q2

REPORT INFORMATION
  Report Type: 
  Country: None (occurrence: None)
  Receive Date: 20110426
  Receipt Date: 20110421
  Transmission Date: 20111010
  Serious: Yes (Death)
  Sender: FDA-Public Use
  Company Number: JP-CELGENEUS-087-21880-11030159

PATIENT
  Sex: Male

DRUGS (11)
  1. LENADEX [Suspect]
     Indication: MULTIPLE MYELOMA
     Dosage: 40 MILLIGRAM
     Route: 048
     Dates: start: 20110225, end: 20110226
  2. MAGMITT [Concomitant]
     Dosage: 1500 MILLIGRAM
     Route: 048
     Dates: start: 20081030, end: 20110226
  3. RENIVACE [Concomitant]
     Indication: HYPERTENSION
     Dosage: 5 MILLIGRAM
     Route: 048
     Dates: start: 20080930, end: 20110226
  4. HERBESSER R [Concomitant]
     Indication: HYPERTENSION
     Dosage: 100 MILLIGRAM
     Route: 048
     Dates: start: 20080930, end: 20110226
  5. REBAMIPIDE [Concomitant]
     Dosage: 300 MILLIGRAM
     Route: 048
     Dates: start: 20110104, end: 20110226
  6. ALOSITOL [Concomitant]
     Dosage: 100 MILLIGRAM
     Route: 048
     Dates: start: 20080930, end: 20110226
  7. REVLIMID [Suspect]
     Indication: MULTIPLE MYELOMA
     Dosage: 5 MILLIGRAM
     Route: 048
     Dates: start: 20110225, end: 20110226
  8. VOLTAREN [Concomitant]
     Dosage: 75 MILLIGRAM
     Route: 048
     Dates: start: 20110104, end: 20110226
  9. URINORM [Concomitant]
     Dosage: 50 MILLIGRAM
     Route: 048
     Dates: start: 20101221, end: 20110226
  10. OMEPRAL [Concomitant]
     Dosage: 20 MILLIGRAM
     Route: 048
     Dates: start: 20080930, end: 20110226
  11. OXYCONTIN [Concomitant]
     Dosage: 20 MILLIGRAM
     Route: 048
     Dates: start: 20110113, end: 20110226

REACTIONS (1)
  - CARDIAC FAILURE [None]
